FAERS Safety Report 17547424 (Version 1)
Quarter: 2020Q1

REPORT INFORMATION
  Report Type: Spontaneous
  Country: JP (occurrence: JP)
  Receive Date: 20200316
  Receipt Date: 20200316
  Transmission Date: 20200409
  Serious: Yes (Hospitalization)
  Sender: FDA-Public Use
  Company Number: JP-ANIPHARMA-2020-JP-000060

PATIENT
  Age: 8 Month
  Sex: Female

DRUGS (1)
  1. CORTICOTROPIN (NON-SPECIFIC) [Suspect]
     Active Substance: CORTICOTROPIN
     Indication: INFANTILE SPASMS
     Dosage: 0.0125 MG/KG

REACTIONS (1)
  - Ventricular hypertrophy [Recovered/Resolved]
